FAERS Safety Report 14896893 (Version 14)
Quarter: 2020Q3

REPORT INFORMATION
  Report Type: Spontaneous
  Country: BG (occurrence: BG)
  Receive Date: 20180515
  Receipt Date: 20190529
  Transmission Date: 20201105
  Serious: Yes (Hospitalization, Other)
  Sender: FDA-Public Use
  Company Number: BG-MYLANLABS-2018M1014690

PATIENT
  Age: 63 Year
  Sex: Female
  Weight: 55 kg

DRUGS (8)
  1. IBUPROFEN. [Suspect]
     Active Substance: IBUPROFEN
     Indication: ARTHRALGIA
     Dosage: 1 DF, UNK
     Route: 048
     Dates: start: 201706, end: 201709
  2. IBUPROFEN. [Suspect]
     Active Substance: IBUPROFEN
     Indication: BONE PAIN
     Dosage: 200 MG? 400 MG
     Route: 048
     Dates: start: 201706, end: 201709
  3. IBUPROFEN. [Suspect]
     Active Substance: IBUPROFEN
     Dosage: 200 MG? 400 MG
     Route: 048
     Dates: start: 201706, end: 201708
  4. ETORICOXIB. [Suspect]
     Active Substance: ETORICOXIB
     Indication: BONE PAIN
     Dosage: LOW?DOSE, SELF?PRESCRIBED
     Dates: start: 201706, end: 201708
  5. IBUPROFEN. [Suspect]
     Active Substance: IBUPROFEN
     Dosage: 1 DF, UNK (1 DF=200 MG? 400 MG )
     Route: 065
  6. ETORICOXIB. [Suspect]
     Active Substance: ETORICOXIB
     Indication: ARTHRALGIA
     Dosage: UNK
     Route: 065
  7. IBUPROFEN. [Suspect]
     Active Substance: IBUPROFEN
     Indication: PAIN
     Dosage: 200 MG? 400 MG
     Route: 048
     Dates: start: 20170601, end: 20170801
  8. ETORICOXIB. [Suspect]
     Active Substance: ETORICOXIB
     Indication: PAIN
     Dosage: 120 MG,QD, TABLET
     Route: 048
     Dates: start: 20170601, end: 20170801

REACTIONS (8)
  - Bone pain [Unknown]
  - Incorrect product administration duration [Unknown]
  - Nephropathy toxic [Recovered/Resolved]
  - Acute kidney injury [Recovered/Resolved]
  - Anaemia [Unknown]
  - Nephropathy [Recovered/Resolved]
  - Arthralgia [Unknown]
  - Blood urea increased [Recovered/Resolved]

NARRATIVE: CASE EVENT DATE: 20170501
